FAERS Safety Report 8563599-X (Version None)
Quarter: 2012Q3

REPORT INFORMATION
  Report Type: 
  Country: None (occurrence: None)
  Receive Date: 20120803
  Receipt Date: 20120725
  Transmission Date: 20120928
  Serious: Yes (Other)
  Sender: FDA-Public Use
  Company Number: JP-009507513-1208JPN000036

PATIENT

DRUGS (6)
  1. DEXAMETHASONE [Suspect]
     Indication: MULTIPLE MYELOMA
     Dosage: 20 MG
     Route: 048
     Dates: start: 20100801
  2. LENALIDOMIDE [Suspect]
     Indication: MULTIPLE MYELOMA
     Dosage: 5 MG,
     Route: 048
     Dates: start: 20100801
  3. LENALIDOMIDE [Suspect]
     Dosage: 10 MG,
     Route: 048
  4. LENALIDOMIDE [Suspect]
     Dosage: UNK
     Route: 048
     Dates: start: 20110101
  5. DEXAMETHASONE [Suspect]
     Dosage: UNK
     Dates: start: 20110101
  6. DEXAMETHASONE [Suspect]
     Dosage: 12 MG,
     Route: 048

REACTIONS (4)
  - BLOOD MAGNESIUM DECREASED [None]
  - BLOOD CALCIUM DECREASED [None]
  - BLOOD ALKALINE PHOSPHATASE INCREASED [None]
  - TETANY [None]
